FAERS Safety Report 18549809 (Version 1)
Quarter: 2020Q4

REPORT INFORMATION
  Report Type: Spontaneous
  Country: AU (occurrence: AU)
  Receive Date: 20201126
  Receipt Date: 20201126
  Transmission Date: 20210114
  Serious: Yes (Hospitalization, Other)
  Sender: FDA-Public Use
  Company Number: AU-PFIZER INC-2020259900

PATIENT
  Age: 41 Year
  Sex: Male

DRUGS (6)
  1. OLANZAPINE. [Suspect]
     Active Substance: OLANZAPINE
     Dosage: 10 MG, PRN (10 MILLIGRAM 1 AS NECESSARY)
     Route: 065
     Dates: start: 20200616
  2. CLOPINE [Suspect]
     Active Substance: CLOZAPINE
     Dosage: 200 MG, 1X/DAY (ONCE AT NIGHT)
     Route: 065
     Dates: start: 20200619, end: 20200707
  3. LORAZEPAM. [Suspect]
     Active Substance: LORAZEPAM
     Dosage: 2 MG, 2X/DAY (BD PRN)
     Route: 065
     Dates: start: 20200616
  4. PANTOPRAZOLE [Suspect]
     Active Substance: PANTOPRAZOLE
     Dosage: 40 MG, DAILY (EVERY MORNING, (OM))
     Route: 048
     Dates: start: 20200618
  5. PARACETAMOL [Suspect]
     Active Substance: ACETAMINOPHEN
     Dosage: 1 G, 4X/DAY (QID PRN)
     Route: 065
     Dates: start: 20200706
  6. OLANZAPINE. [Suspect]
     Active Substance: OLANZAPINE
     Dosage: 10 MG, 2X/DAY (BD)
     Route: 065
     Dates: start: 20200708

REACTIONS (10)
  - C-reactive protein increased [Unknown]
  - Gastroenteritis viral [Unknown]
  - Troponin increased [Unknown]
  - Chest pain [Unknown]
  - Myocarditis [Unknown]
  - Palpitations [Unknown]
  - Dyspnoea [Unknown]
  - Sinus tachycardia [Unknown]
  - Nausea [Recovered/Resolved]
  - Vomiting [Recovered/Resolved]

NARRATIVE: CASE EVENT DATE: 20200707
